FAERS Safety Report 6333300-9 (Version None)
Quarter: 2009Q3

REPORT INFORMATION
  Report Type: 
  Country: None (occurrence: None)
  Receive Date: 20090828
  Receipt Date: 20090819
  Transmission Date: 20100115
  Serious: Yes (Death, Hospitalization)
  Sender: FDA-Public Use
  Company Number: IN-ELI_LILLY_AND_COMPANY-IN200908004239

PATIENT
  Age: 70 Year
  Sex: Male

DRUGS (3)
  1. FORTEO [Suspect]
     Indication: OSTEOPOROSIS
     Dosage: 20 UG, DAILY (1/D)
     Route: 058
  2. ANTI-ASTHMATICS [Concomitant]
     Indication: ASTHMA
     Dosage: UNK, UNKNOWN
     Route: 055
  3. CORTICOSTEROIDS [Concomitant]
     Indication: ASTHMA
     Dosage: UNK, UNKNOWN
     Route: 065

REACTIONS (4)
  - ASTHMA [None]
  - DEATH [None]
  - DYSPNOEA [None]
  - PLEURAL EFFUSION [None]
